FAERS Safety Report 6410330-X (Version None)
Quarter: 2009Q4

REPORT INFORMATION
  Report Type: 
  Country: None (occurrence: None)
  Receive Date: 20091022
  Receipt Date: 20091012
  Transmission Date: 20100525
  Serious: Yes (Other)
  Sender: FDA-Public Use
  Company Number: US-JNJFOC-20091004000

PATIENT
  Sex: Female
  Weight: 90.81 kg

DRUGS (3)
  1. DOXIL [Suspect]
     Indication: ENDOMETRIAL SARCOMA
     Route: 042
  2. TAXOL [Suspect]
     Indication: ENDOMETRIAL SARCOMA
     Route: 065
  3. CARBOPLATIN [Suspect]
     Indication: ENDOMETRIAL SARCOMA
     Route: 065

REACTIONS (3)
  - MALIGNANT NEOPLASM PROGRESSION [None]
  - METASTASES TO LUNG [None]
  - OFF LABEL USE [None]
